FAERS Safety Report 24081457 (Version 1)
Quarter: 2024Q3

REPORT INFORMATION
  Report Type: Spontaneous
  Country: US (occurrence: US)
  Receive Date: 20240712
  Receipt Date: 20240712
  Transmission Date: 20241016
  Serious: No
  Sender: GLAXOSMITHKLINE
  Company Number: US-GSK-US2024AMR086080

PATIENT
  Sex: Female

DRUGS (3)
  1. BENLYSTA [Suspect]
     Active Substance: BELIMUMAB
     Indication: Systemic lupus erythematosus
     Dosage: 120 MG; INFUSE 659MG (10MG/KG); AT WEEKS 0
     Route: 042
  2. BENLYSTA [Suspect]
     Active Substance: BELIMUMAB
     Dosage: 120 MG; INFUSE 659MG (10MG/KG); AT WEEKS 2
     Route: 042
  3. BENLYSTA [Suspect]
     Active Substance: BELIMUMAB
     Dosage: 120 MG, Q4W;  INFUSE 659MG (10MG/KG); AT WEEKS 4
     Route: 042

REACTIONS (1)
  - Product dose omission issue [Unknown]
